FAERS Safety Report 5265518-0 (Version None)
Quarter: 2007Q1

REPORT INFORMATION
  Report Type: 
  Country: None (occurrence: None)
  Receive Date: 20070314
  Receipt Date: 20070302
  Transmission Date: 20070707
  Serious: Yes (Death, Hospitalization)
  Sender: FDA-Public Use
  Company Number: ES-PFIZER INC-2007013956

PATIENT
  Sex: Male
  Weight: 64 kg

DRUGS (5)
  1. SU-011,248 [Suspect]
     Indication: METASTATIC RENAL CELL CARCINOMA
     Route: 048
     Dates: start: 20060901, end: 20070214
  2. FORTECORTIN [Concomitant]
     Route: 048
  3. INSULIN [Concomitant]
     Route: 058
  4. ACTRAPID [Concomitant]
     Route: 048
  5. OMEPRAZOLE [Concomitant]
     Route: 048

REACTIONS (5)
  - DISEASE PROGRESSION [None]
  - METASTATIC RENAL CELL CARCINOMA [None]
  - MUCOSAL INFLAMMATION [None]
  - NEUTROPENIA [None]
  - PNEUMONIA [None]
